FAERS Safety Report 19486984 (Version 2)
Quarter: 2021Q3

REPORT INFORMATION
  Report Type: Spontaneous
  Country: JP (occurrence: JP)
  Receive Date: 20210702
  Receipt Date: 20210810
  Transmission Date: 20211014
  Serious: Yes (Hospitalization, Other)
  Sender: FDA-Public Use
  Company Number: JP-TEVA-2021-JP-003278J

PATIENT
  Age: 90 Year
  Sex: Female

DRUGS (18)
  1. URIADEC [Concomitant]
     Active Substance: TOPIROXOSTAT
     Dosage: 240 MILLIGRAM DAILY;
     Route: 048
  2. ROSUVASTATIN CALCIUM. [Concomitant]
     Active Substance: ROSUVASTATIN CALCIUM
     Dosage: 2.5 MILLIGRAM DAILY;
     Route: 065
  3. PREGABALIN OD TAB. 75MG ^TAKEDA TEVA^ [Suspect]
     Active Substance: PREGABALIN
     Dosage: 150 MILLIGRAM DAILY;
     Route: 048
  4. SENNOSIDE [Concomitant]
     Active Substance: SENNOSIDES
     Dosage: 12 MILLIGRAM DAILY;
     Route: 048
  5. FUROSEMIDE. [Concomitant]
     Active Substance: FUROSEMIDE
     Dosage: 10 MILLIGRAM DAILY;
     Route: 065
  6. PREGABALIN OD TAB. 75MG ^TAKEDA TEVA^ [Suspect]
     Active Substance: PREGABALIN
     Dosage: 75 MILLIGRAM DAILY;
     Route: 048
  7. CARVEDILOL. [Concomitant]
     Active Substance: CARVEDILOL
     Dosage: 2.5 MILLIGRAM DAILY;
     Route: 048
  8. MOVICOL [Concomitant]
     Active Substance: POLYETHYLENE GLYCOL 3350\POTASSIUM CHLORIDE\SODIUM BICARBONATE\SODIUM CHLORIDE
     Dosage: 8 DOSAGE FORMS DAILY;
     Route: 048
  9. ENORAS [Concomitant]
     Dosage: 1687.5 ML DAILY;
     Route: 065
  10. PREGABALIN OD TAB. 75MG ^TAKEDA TEVA^ [Suspect]
     Active Substance: PREGABALIN
     Indication: NEURALGIA
     Dosage: 150 MILLIGRAM DAILY;
     Route: 048
  11. PREGABALIN OD TAB. 75MG ^TAKEDA TEVA^ [Suspect]
     Active Substance: PREGABALIN
     Route: 048
     Dates: start: 20210602
  12. FORXIGA [Concomitant]
     Active Substance: DAPAGLIFLOZIN
     Dosage: 10 MILLIGRAM DAILY;
     Route: 065
  13. HEPARINOID [Concomitant]
     Active Substance: CHONDROITIN SULFATE (BOVINE)
     Route: 065
  14. CALCITRIOL. [Concomitant]
     Active Substance: CALCITRIOL
     Dosage: .25 MICROGRAM DAILY;
     Route: 065
  15. TOARASET [Concomitant]
     Active Substance: ACETAMINOPHEN\TRAMADOL HYDROCHLORIDE
     Route: 065
  16. NEUROTROPIN [Concomitant]
     Active Substance: NEUROTROPIN
     Route: 065
  17. CABPIRIN [Concomitant]
     Dosage: 1 DOSAGE FORMS DAILY;
     Route: 065
  18. SODIUM PICOSULFATE HYDRATE [Concomitant]
     Active Substance: SODIUM PICOSULFATE
     Route: 065

REACTIONS (3)
  - Renal failure [Not Recovered/Not Resolved]
  - Neuralgia [Unknown]
  - Hospitalisation [Unknown]

NARRATIVE: CASE EVENT DATE: 20210525
